FAERS Safety Report 4785392-6 (Version None)
Quarter: 2005Q3

REPORT INFORMATION
  Report Type: 
  Country: None (occurrence: None)
  Receive Date: 20050929
  Receipt Date: 20050914
  Transmission Date: 20060218
  Serious: Yes (Death, Life-Threatening, Hospitalization)
  Sender: FDA-Public Use
  Company Number: 8011625

PATIENT
  Age: 6 Year
  Sex: Male
  Weight: 18.6 kg

DRUGS (6)
  1. KEPPRA [Suspect]
     Indication: EPILEPSY
     Dosage: D
     Dates: start: 20050525, end: 20050830
  2. KEPPRA [Suspect]
     Indication: MYOCLONUS
     Dosage: D
     Dates: start: 20050525, end: 20050830
  3. TIMOX [Concomitant]
  4. PROPRANOLOL HYDROCHLORIDE [Concomitant]
  5. MELATONIN [Concomitant]
  6. STEROIDS [Concomitant]

REACTIONS (3)
  - CHOLESTASIS [None]
  - HEPATIC ENZYME INCREASED [None]
  - MULTI-ORGAN FAILURE [None]
